FAERS Safety Report 18706360 (Version 3)
Quarter: 2021Q1

REPORT INFORMATION
  Report Type: Report from Study
  Country: US (occurrence: US)
  Receive Date: 20210106
  Receipt Date: 20210218
  Transmission Date: 20210419
  Serious: No
  Sender: FDA-Public Use
  Company Number: NVSC2021US000819

PATIENT
  Age: 46 Year
  Sex: Male

DRUGS (1)
  1. KESIMPTA [Suspect]
     Active Substance: OFATUMUMAB
     Indication: PRODUCT USED FOR UNKNOWN INDICATION
     Dosage: 20 MG, ONCE/SINGLE
     Route: 058
     Dates: start: 20210102

REACTIONS (9)
  - Influenza like illness [Unknown]
  - Vomiting [Unknown]
  - Hyperhidrosis [Recovered/Resolved]
  - Diarrhoea [Unknown]
  - Illness [Unknown]
  - Infection [Unknown]
  - Urinary tract infection [Unknown]
  - Pyrexia [Recovered/Resolved]
  - Abdominal pain upper [Recovered/Resolved]

NARRATIVE: CASE EVENT DATE: 20210102
